FAERS Safety Report 6866864-7 (Version None)
Quarter: 2010Q3

REPORT INFORMATION
  Report Type: 
  Country: None (occurrence: None)
  Receive Date: 20100722
  Receipt Date: 20100716
  Transmission Date: 20110219
  Serious: Yes (Death, Hospitalization)
  Sender: FDA-Public Use
  Company Number: US-BAYER-200918511NA

PATIENT
  Age: 80 Year
  Sex: Female
  Weight: 60 kg

DRUGS (20)
  1. SORAFENIB [Suspect]
     Indication: NON-SMALL CELL LUNG CANCER
     Dosage: TOTAL DAILY DOSE: 800 MG  UNIT DOSE: 200 MG
     Route: 048
     Dates: start: 20090227, end: 20090101
  2. SORAFENIB [Suspect]
     Dosage: TOTAL DAILY DOSE: 800 MG  UNIT DOSE: 200 MG
     Route: 048
     Dates: start: 20090101, end: 20100331
  3. SORAFENIB [Suspect]
     Dosage: TOTAL DAILY DOSE: 400 MG  UNIT DOSE: 200 MG
     Route: 048
     Dates: start: 20100415, end: 20100529
  4. ERLOTINIB [Suspect]
     Indication: NON-SMALL CELL LUNG CANCER
     Dosage: TOTAL DAILY DOSE: 150 MG
     Route: 048
     Dates: start: 20090227
  5. ERLOTINIB [Suspect]
     Dosage: TOTAL DAILY DOSE: 150 MG
     Route: 048
     Dates: end: 20100331
  6. ERLOTINIB [Suspect]
     Dosage: TOTAL DAILY DOSE: 100 MG
     Route: 048
     Dates: start: 20100415, end: 20100529
  7. NORVASC [Concomitant]
     Indication: HYPERTENSION
     Dosage: TOTAL DAILY DOSE: 10 MG
     Dates: start: 20081001
  8. NORVASC [Concomitant]
     Dosage: TOTAL DAILY DOSE: 5 MG
     Dates: start: 20090801
  9. COREG [Concomitant]
     Indication: HYPERTENSION
     Dosage: TOTAL DAILY DOSE: 50 MG
     Route: 048
     Dates: start: 20081001
  10. LOZOL [Concomitant]
     Dosage: TOTAL DAILY DOSE: 2.5 MG
     Route: 048
     Dates: start: 20060601
  11. LIPITOR [Concomitant]
     Dosage: TOTAL DAILY DOSE: 10 MG
     Dates: start: 20070301
  12. FERROUS SULFATE [Concomitant]
     Indication: IRON DEFICIENCY ANAEMIA
     Dosage: TOTAL DAILY DOSE: 325 MG
     Dates: start: 20070129
  13. FERROUS SULFATE [Concomitant]
     Dosage: TOTAL DAILY DOSE: 325 MG
     Dates: start: 20100601
  14. LOMOTIL [Concomitant]
     Dosage: 1 TAB
     Route: 048
     Dates: start: 20090410
  15. SPIRIVA [Concomitant]
     Indication: BRONCHITIS
     Dosage: 1 PUFF DAILY
     Dates: start: 20100401
  16. SYMBICORT [Concomitant]
     Indication: BRONCHITIS
     Dosage: 2 PUFFS BID
     Dates: start: 20100401
  17. ALBUTEROL [Concomitant]
     Indication: BRONCHOSPASM
     Dosage: UNIT DOSE Q6H
     Dates: start: 20100601
  18. PEPCID [Concomitant]
     Indication: PROPHYLAXIS
     Dosage: TOTAL DAILY DOSE: 20 MG
     Dates: start: 20100601
  19. PREDNISONE TAB [Concomitant]
     Indication: CHRONIC OBSTRUCTIVE PULMONARY DISEASE
     Dosage: TOTAL DAILY DOSE: 60 MG
     Dates: start: 20100601
  20. ADVAIR DISKUS 100/50 [Concomitant]
     Indication: ASTHMA
     Dosage: 250-50
     Dates: start: 20100601

REACTIONS (9)
  - ASTHENIA [None]
  - BLOOD ELECTROLYTES ABNORMAL [None]
  - BRONCHITIS [None]
  - DIARRHOEA [None]
  - DYSPNOEA [None]
  - HYPOXIA [None]
  - MYOCARDIAL INFARCTION [None]
  - PNEUMONIA [None]
  - RESPIRATORY FAILURE [None]
